FAERS Safety Report 25151442 (Version 1)
Quarter: 2025Q2

REPORT INFORMATION
  Report Type: Spontaneous
  Country: US (occurrence: None)
  Receive Date: 20250402
  Receipt Date: 20250402
  Transmission Date: 20250716
  Serious: Yes (unspecified)
  Sender: FDA-CTU
  Company Number: None

PATIENT
  Age: 81 Year
  Sex: Male
  Weight: 97.1 kg

DRUGS (2)
  1. CALQUENCE [Suspect]
     Active Substance: ACALABRUTINIB
     Indication: Chronic lymphocytic leukaemia
     Dosage: FREQUENCY : TWICE A DAY;?
     Route: 048
     Dates: start: 20250305
  2. IBRUTINIB [Suspect]
     Active Substance: IBRUTINIB

REACTIONS (6)
  - Ecchymosis [None]
  - Therapy cessation [None]
  - Hypertension [None]
  - Fatigue [None]
  - Insomnia [None]
  - Irritability [None]

NARRATIVE: CASE EVENT DATE: 20250328
